FAERS Safety Report 8700890 (Version 2)
Quarter: 2012Q4

REPORT INFORMATION
  Report Type: 
  Country: US (occurrence: US)
  Receive Date: 20120802
  Receipt Date: 20121205
  Transmission Date: 20130627
  Serious: Yes (Other)
  Sender: FDA-Public Use
  Company Number: US-AMGEN-USASP2012044603

PATIENT
  Age: 47 Year
  Sex: Female
  Weight: 54.88 kg

DRUGS (4)
  1. ENBREL [Suspect]
     Indication: PSORIASIS
     Dosage: 50 mg, 2 times/wk
     Route: 058
     Dates: start: 20090903
  2. SORIATANE [Concomitant]
     Dosage: UNK
  3. NORVASC [Concomitant]
     Indication: BLOOD PRESSURE
     Dosage: 10 mg, qd
     Route: 048
  4. TOPROL [Suspect]
     Dosage: 25 mg, 24 hrs

REACTIONS (3)
  - Extranodal marginal zone B-cell lymphoma (MALT type) [Not Recovered/Not Resolved]
  - Ovarian cyst [Unknown]
  - Laceration [Recovered/Resolved]
